FAERS Safety Report 10118762 (Version 1)
Quarter: 2014Q2

REPORT INFORMATION
  Report Type: Other
  Country: FR (occurrence: FR)
  Receive Date: 20140425
  Receipt Date: 20140425
  Transmission Date: 20141212
  Serious: Yes (Other)
  Sender: FDA-Public Use
  Company Number: FR-ASTELLAS-2014US003994

PATIENT
  Age: 65 Year
  Sex: Female

DRUGS (2)
  1. TARCEVA [Suspect]
     Indication: LUNG ADENOCARCINOMA
     Route: 048
     Dates: start: 201308
  2. TARCEVA [Suspect]
     Route: 048
     Dates: start: 20140212

REACTIONS (2)
  - Conjunctival ulcer [Recovered/Resolved]
  - Dry eye [Recovered/Resolved with Sequelae]
